FAERS Safety Report 7825609-4 (Version None)
Quarter: 2011Q4

REPORT INFORMATION
  Report Type: 
  Country: None (occurrence: None)
  Receive Date: 20111019
  Receipt Date: 20101006
  Transmission Date: 20120403
  Serious: Yes (Hospitalization, Other)
  Sender: FDA-Public Use
  Company Number: US-BAXTER-2010BH003505

PATIENT
  Age: 58 Year
  Sex: Male
  Weight: 79 kg

DRUGS (49)
  1. HEPARIN SODIUM INJECTION [Suspect]
     Indication: MITRAL VALVE REPAIR
     Route: 042
     Dates: start: 20080409, end: 20080409
  2. HEPARIN SODIUM INJECTION [Suspect]
     Route: 058
     Dates: start: 20080410, end: 20080415
  3. HEPARIN SODIUM INJECTION [Suspect]
     Route: 042
     Dates: start: 20080522, end: 20080522
  4. FOLIC ACID [Concomitant]
     Indication: PRODUCT USED FOR UNKNOWN INDICATION
     Route: 065
  5. WARFARIN SODIUM [Concomitant]
     Indication: PRODUCT USED FOR UNKNOWN INDICATION
     Route: 065
  6. HEPARIN SODIUM INJECTION [Suspect]
     Route: 042
     Dates: start: 20080519, end: 20080519
  7. HEPARIN SODIUM INJECTION [Suspect]
     Route: 042
     Dates: start: 20080519, end: 20080519
  8. FERROUS GLUCONATE [Concomitant]
     Indication: PRODUCT USED FOR UNKNOWN INDICATION
     Route: 065
  9. HEPARIN SODIUM INJECTION [Suspect]
     Route: 010
     Dates: start: 20080522, end: 20080522
  10. HYDROXYCHLOROQUINE SULFATE [Concomitant]
     Indication: PRODUCT USED FOR UNKNOWN INDICATION
     Route: 065
  11. CIPROFLOXACIN [Concomitant]
     Indication: PNEUMONIA
     Route: 065
  12. VALSARTAN [Concomitant]
     Indication: PRODUCT USED FOR UNKNOWN INDICATION
     Route: 065
  13. PERCOCET [Concomitant]
     Indication: PRODUCT USED FOR UNKNOWN INDICATION
     Route: 065
  14. HEPARIN SODIUM INJECTION [Suspect]
     Route: 042
     Dates: start: 20080522, end: 20080522
  15. HEPARIN SODIUM INJECTION [Suspect]
     Route: 010
     Dates: start: 20080516, end: 20080516
  16. HEPARIN SODIUM INJECTION [Suspect]
     Route: 040
     Dates: start: 20080518, end: 20080518
  17. EFFEXOR XR [Concomitant]
     Indication: PRODUCT USED FOR UNKNOWN INDICATION
     Route: 065
  18. HEPARIN SODIUM INJECTION [Suspect]
     Indication: HAEMODIALYSIS
     Route: 042
     Dates: start: 20080409, end: 20080409
  19. HEPARIN SODIUM INJECTION [Suspect]
     Route: 010
     Dates: start: 20080516, end: 20080516
  20. HEPARIN SODIUM INJECTION [Suspect]
     Route: 010
     Dates: start: 20080522, end: 20080522
  21. HEPARIN SODIUM INJECTION [Suspect]
     Route: 040
     Dates: start: 20080518, end: 20080518
  22. HEPARIN SODIUM INJECTION [Suspect]
     Route: 042
     Dates: start: 20080522, end: 20080522
  23. MILRINONE [Suspect]
     Indication: CARDIAC FAILURE CONGESTIVE
     Route: 065
     Dates: start: 20080601, end: 20080101
  24. ZITHROMAX [Concomitant]
     Indication: PRODUCT USED FOR UNKNOWN INDICATION
     Route: 065
  25. COMBIVENT [Concomitant]
     Indication: PRODUCT USED FOR UNKNOWN INDICATION
     Route: 065
  26. MAGNESIUM SULFATE [Concomitant]
     Indication: PRODUCT USED FOR UNKNOWN INDICATION
     Route: 065
  27. POTASSIUM [Concomitant]
     Indication: PRODUCT USED FOR UNKNOWN INDICATION
     Route: 065
  28. HEPARIN SODIUM INJECTION [Suspect]
     Route: 058
     Dates: start: 20080410, end: 20080415
  29. HEPARIN SODIUM INJECTION [Suspect]
     Route: 040
     Dates: start: 20080518, end: 20080518
  30. HEPARIN SODIUM 5,000 UNITS IN DEXTROSE 5% [Suspect]
     Indication: PULMONARY EMBOLISM
     Route: 042
     Dates: start: 20080518, end: 20080522
  31. GABAPENTIN [Concomitant]
     Indication: PRODUCT USED FOR UNKNOWN INDICATION
     Route: 065
  32. CEFAZOLIN [Concomitant]
     Indication: PRODUCT USED FOR UNKNOWN INDICATION
     Route: 065
  33. HEPARIN SODIUM INJECTION [Suspect]
     Route: 042
     Dates: start: 20080522, end: 20080522
  34. HEPARIN SODIUM INJECTION [Suspect]
     Route: 042
     Dates: start: 20080522, end: 20080522
  35. HEPARIN SODIUM INJECTION [Suspect]
     Route: 010
     Dates: start: 20080522, end: 20080522
  36. HEPARIN SODIUM INJECTION [Suspect]
     Route: 042
     Dates: start: 20080519, end: 20080519
  37. HYDROCODONE BITARTRATE [Concomitant]
     Indication: PRODUCT USED FOR UNKNOWN INDICATION
     Route: 065
  38. FUROSEMIDE [Concomitant]
     Indication: PRODUCT USED FOR UNKNOWN INDICATION
     Route: 065
  39. AMIODARONE HCL [Concomitant]
     Indication: PRODUCT USED FOR UNKNOWN INDICATION
     Route: 065
  40. HEPARIN SODIUM INJECTION [Suspect]
     Indication: PULMONARY EMBOLISM
     Route: 042
     Dates: start: 20080409, end: 20080409
  41. HEPARIN SODIUM INJECTION [Suspect]
     Route: 058
     Dates: start: 20080410, end: 20080415
  42. HEPARIN SODIUM INJECTION [Suspect]
     Route: 010
     Dates: start: 20080516, end: 20080516
  43. HEPARIN SODIUM INJECTION [Suspect]
     Route: 042
     Dates: start: 20080522, end: 20080522
  44. OMEPRAZOLE [Concomitant]
     Indication: PRODUCT USED FOR UNKNOWN INDICATION
     Route: 065
  45. TYLENOL W/ CODEINE NO. 3 [Concomitant]
     Indication: PRODUCT USED FOR UNKNOWN INDICATION
     Route: 065
  46. CARTIA XT [Concomitant]
     Indication: PRODUCT USED FOR UNKNOWN INDICATION
     Route: 065
  47. 5% DEXTROSE INJECTION [Concomitant]
     Indication: PRODUCT USED FOR UNKNOWN INDICATION
     Route: 065
  48. ALBUTEROL [Concomitant]
     Indication: PRODUCT USED FOR UNKNOWN INDICATION
     Route: 065
  49. DOCUSATE SODIUM [Concomitant]
     Indication: PRODUCT USED FOR UNKNOWN INDICATION
     Route: 065

REACTIONS (21)
  - MULTI-ORGAN FAILURE [None]
  - HEPARIN-INDUCED THROMBOCYTOPENIA [None]
  - CARDIAC FAILURE CONGESTIVE [None]
  - HYPOPROTHROMBINAEMIA [None]
  - DIARRHOEA [None]
  - PNEUMONIA [None]
  - VOMITING [None]
  - ACUTE RESPIRATORY FAILURE [None]
  - COAGULOPATHY [None]
  - EJECTION FRACTION DECREASED [None]
  - VENTRICULAR TACHYCARDIA [None]
  - ISCHAEMIC HEPATITIS [None]
  - METABOLIC ACIDOSIS [None]
  - PULMONARY EMBOLISM [None]
  - HYPOTENSION [None]
  - HYPOKINESIA [None]
  - CARDIAC VALVE REPLACEMENT COMPLICATION [None]
  - NAUSEA [None]
  - RENAL FAILURE ACUTE [None]
  - FATIGUE [None]
  - DRUG HYPERSENSITIVITY [None]
